FAERS Safety Report 9890989 (Version 1)
Quarter: 2014Q1

REPORT INFORMATION
  Report Type: Spontaneous
  Country: US (occurrence: None)
  Receive Date: 20140211
  Receipt Date: 20140211
  Transmission Date: 20141002
  Serious: Yes (Hospitalization, Disabling, Other)
  Sender: FDA-Public Use
  Company Number: None

PATIENT
  Sex: 0

DRUGS (6)
  1. TESTOSTERONE CYPIONATE [Suspect]
     Indication: BLOOD TESTOSTERONE DECREASED
     Dosage: 200 MG/ML INJ. 1ML?INJ. 1ML?EVERY 14 DAYS?INJECTION
     Route: 042
     Dates: start: 20130807, end: 20130123
  2. HCTZ [Concomitant]
  3. LISINOPRIL [Concomitant]
  4. PREDNISONE [Concomitant]
  5. OXYCONTIN [Concomitant]
  6. WARFRN [Concomitant]

REACTIONS (2)
  - Thrombosis [None]
  - Pulmonary thrombosis [None]
